FAERS Safety Report 22299396 (Version 7)
Quarter: 2023Q4

REPORT INFORMATION
  Report Type: Report from Study
  Country: NL (occurrence: NL)
  Receive Date: 20230509
  Receipt Date: 20231116
  Transmission Date: 20240110
  Serious: Yes (Life-Threatening, Hospitalization, Other)
  Sender: FDA-Public Use
  Company Number: NL-ABBVIE-4758801

PATIENT
  Age: 76 Year
  Sex: Male

DRUGS (16)
  1. CARBIDOPA\LEVODOPA [Suspect]
     Active Substance: CARBIDOPA\LEVODOPA
     Indication: Parkinson^s disease
     Dosage: MD: 15.5 ML, CD: 3.9 ML/H, ED: 2.8 ML/REMAINS AT 16 HOURS
     Route: 050
     Dates: start: 20230531
  2. CARBIDOPA\LEVODOPA [Suspect]
     Active Substance: CARBIDOPA\LEVODOPA
     Route: 050
  3. CARBIDOPA\LEVODOPA [Suspect]
     Active Substance: CARBIDOPA\LEVODOPA
     Dosage: MD: 15.8 ML, CD: 3.9 ML/H, ED: 2.8 ML/REMAINS AT 16 HOURS
     Route: 050
  4. CARBIDOPA\LEVODOPA [Suspect]
     Active Substance: CARBIDOPA\LEVODOPA
     Route: 050
  5. CARBIDOPA\LEVODOPA [Suspect]
     Active Substance: CARBIDOPA\LEVODOPA
     Dosage: MD: 15.0 ML, CD: 3.9 ML/H, ED: 2.8 ML
     Route: 050
  6. CARBIDOPA\LEVODOPA [Suspect]
     Active Substance: CARBIDOPA\LEVODOPA
     Dosage: MD: 15.5 ML/REMAINS AT 16 HOURS
     Route: 050
  7. CARBIDOPA\LEVODOPA [Suspect]
     Active Substance: CARBIDOPA\LEVODOPA
     Dosage: MD: 15.0 ML, CD: 3.9 ML/H, ED: 2.8 ML REMAINS AT 16 HOURS
     Route: 050
  8. CARBIDOPA\LEVODOPA [Suspect]
     Active Substance: CARBIDOPA\LEVODOPA
     Dosage: REMAINS AT 16 HOURS
     Route: 050
     Dates: start: 20190319
  9. CARBIDOPA\LEVODOPA [Suspect]
     Active Substance: CARBIDOPA\LEVODOPA
     Dosage: MD: 15.8 ML, CD: 3.9 ML/H, ED: 2.5 ML REMAINS AT 16 HOURS
     Route: 050
  10. POLYETHYLENE GLYCOLS [Concomitant]
     Active Substance: POLYETHYLENE GLYCOLS
     Indication: Bowel movement irregularity
     Dosage: 2 TO 3 SACHETS A DAY
     Route: 065
  11. CARBIDOPA\LEVODOPA [Concomitant]
     Active Substance: CARBIDOPA\LEVODOPA
     Indication: Parkinson^s disease
     Route: 065
  12. ENTACAPONE [Concomitant]
     Active Substance: ENTACAPONE
     Indication: Parkinson^s disease
     Route: 065
  13. CHOLECALCIFEROL [Concomitant]
     Active Substance: CHOLECALCIFEROL
     Indication: Product used for unknown indication
     Route: 065
  14. CLOZAPINE [Concomitant]
     Active Substance: CLOZAPINE
     Indication: Hallucination
     Dosage: TIME INTERVAL: 0.33333333 DAYS
     Route: 065
  15. VESICARE [Concomitant]
     Active Substance: SOLIFENACIN SUCCINATE
     Indication: Product used for unknown indication
     Route: 065
  16. RIVASTIGMINE [Concomitant]
     Active Substance: RIVASTIGMINE
     Indication: Hallucination

REACTIONS (23)
  - Choking [Recovered/Resolved]
  - Hospitalisation [Recovered/Resolved]
  - Oxygen saturation decreased [Unknown]
  - Myocardial infarction [Recovered/Resolved with Sequelae]
  - Hypotension [Not Recovered/Not Resolved]
  - Confusional state [Not Recovered/Not Resolved]
  - Device dislocation [Not Recovered/Not Resolved]
  - Pyrexia [Recovered/Resolved]
  - Unevaluable event [Not Recovered/Not Resolved]
  - Rehabilitation therapy [Recovered/Resolved]
  - On and off phenomenon [Not Recovered/Not Resolved]
  - Memory impairment [Not Recovered/Not Resolved]
  - Freezing phenomenon [Not Recovered/Not Resolved]
  - Dyskinesia [Not Recovered/Not Resolved]
  - Cognitive disorder [Not Recovered/Not Resolved]
  - Nocturia [Not Recovered/Not Resolved]
  - Speech disorder [Not Recovered/Not Resolved]
  - Fall [Not Recovered/Not Resolved]
  - Dysphagia [Not Recovered/Not Resolved]
  - Parkinson^s disease [Not Recovered/Not Resolved]
  - Weight decreased [Not Recovered/Not Resolved]
  - Abnormal dreams [Not Recovered/Not Resolved]
  - Decreased appetite [Not Recovered/Not Resolved]

NARRATIVE: CASE EVENT DATE: 20230101
